FAERS Safety Report 15036966 (Version 1)
Quarter: 2018Q2

REPORT INFORMATION
  Report Type: Spontaneous
  Country: US (occurrence: US)
  Receive Date: 20180530
  Receipt Date: 20180530
  Transmission Date: 20180711
  Serious: Yes (Disabling)
  Sender: FDA-Public Use
  Company Number: None

PATIENT
  Age: 61 Year
  Sex: Female
  Weight: 60.33 kg

DRUGS (10)
  1. DULOXETINE. [Suspect]
     Active Substance: DULOXETINE
     Indication: BACK PAIN
     Route: 048
     Dates: start: 20171001, end: 20180510
  2. CELEBREX [Concomitant]
     Active Substance: CELECOXIB
  3. CALCIUM [Concomitant]
     Active Substance: CALCIUM
  4. FISH OIL [Concomitant]
     Active Substance: FISH OIL
  5. LUNESTA [Concomitant]
     Active Substance: ESZOPICLONE
  6. VITAMIN D [Concomitant]
     Active Substance: CHOLECALCIFEROL
  7. BIOTEN [Concomitant]
  8. MAGNESIUM [Concomitant]
     Active Substance: MAGNESIUM
  9. TIZANIDINE. [Concomitant]
     Active Substance: TIZANIDINE
  10. METROPROLOL [Concomitant]
     Active Substance: METOPROLOL

REACTIONS (15)
  - Blood potassium increased [None]
  - Blood calcium increased [None]
  - Memory impairment [None]
  - Hyperhidrosis [None]
  - Drug ineffective [None]
  - Pain [None]
  - Vertigo [None]
  - Fatigue [None]
  - Headache [None]
  - Lethargy [None]
  - Drug withdrawal syndrome [None]
  - Nausea [None]
  - Diarrhoea [None]
  - Chills [None]
  - Impaired work ability [None]
